FAERS Safety Report 4464862-4 (Version None)
Quarter: 2004Q4

REPORT INFORMATION
  Report Type: 
  Country: None (occurrence: None)
  Receive Date: 20041004
  Receipt Date: 20031208
  Transmission Date: 20050328
  Serious: No
  Sender: FDA-Public Use
  Company Number: 355751

PATIENT
  Age: 77 Year
  Sex: Male

DRUGS (7)
  1. COREG [Suspect]
     Dosage: 12.5MG TWICE PER DAY
     Route: 048
  2. LISINOPRIL [Concomitant]
  3. DIGOXIN [Concomitant]
  4. FINASTERIDE [Concomitant]
  5. TERAZOSIN HCL [Concomitant]
  6. COUMADIN [Concomitant]
  7. BENZONATATE [Concomitant]

REACTIONS (2)
  - BRONCHITIS [None]
  - COUGH [None]
